FAERS Safety Report 11185855 (Version 1)
Quarter: 2015Q2

REPORT INFORMATION
  Report Type: Spontaneous
  Country: US (occurrence: US)
  Receive Date: 20150612
  Receipt Date: 20150612
  Transmission Date: 20150821
  Serious: No
  Sender: FDA-Public Use
  Company Number: US-GLAXOSMITHKLINE-US2015GSK067350

PATIENT
  Sex: Female

DRUGS (1)
  1. BENZOYL PEROXIDE + CLINDAMYCIN PHOSPHATE GEL [Suspect]
     Active Substance: BENZOYL PEROXIDE\CLINDAMYCIN PHOSPHATE
     Indication: PRODUCT USED FOR UNKNOWN INDICATION
     Dosage: UNK, U
     Route: 065

REACTIONS (2)
  - Dry skin [Unknown]
  - Drug effect incomplete [Unknown]
